FAERS Safety Report 20768991 (Version 3)
Quarter: 2022Q2

REPORT INFORMATION
  Report Type: Spontaneous
  Country: CN (occurrence: None)
  Receive Date: 20220429
  Receipt Date: 20220519
  Transmission Date: 20220721
  Serious: Yes (Other)
  Sender: FDA-Public Use
  Company Number: 2022A109897

PATIENT
  Age: 47 Year
  Sex: Male
  Weight: 70 kg

DRUGS (3)
  1. IMFINZI [Suspect]
     Active Substance: DURVALUMAB
     Indication: Non-small cell lung cancer stage III
     Dosage: 1000MG/CYCLE
     Route: 041
     Dates: start: 20201113, end: 20201209
  2. PEMETREXED [Concomitant]
     Active Substance: PEMETREXED
     Dates: end: 202109
  3. CARBOPLATIN [Concomitant]
     Active Substance: CARBOPLATIN
     Dates: end: 202109

REACTIONS (3)
  - Radiation pneumonitis [Recovering/Resolving]
  - Hypoxia [Recovering/Resolving]
  - Asthenia [Recovering/Resolving]
